FAERS Safety Report 5274364-3 (Version None)
Quarter: 2007Q1

REPORT INFORMATION
  Report Type: 
  Country: None (occurrence: None)
  Receive Date: 20070323
  Receipt Date: 20070312
  Transmission Date: 20070707
  Serious: Yes (Other)
  Sender: FDA-Public Use
  Company Number: US-PFIZER INC-2006127153

PATIENT
  Sex: Male
  Weight: 82.6 kg

DRUGS (13)
  1. CELEBREX [Suspect]
     Indication: PAIN
     Route: 048
     Dates: start: 20000309, end: 20000501
  2. CELEBREX [Suspect]
     Indication: ARTHRITIS
  3. BEXTRA [Suspect]
     Route: 048
  4. VIOXX [Suspect]
     Route: 048
     Dates: start: 20010101, end: 20031201
  5. PLAVIX [Concomitant]
  6. ACETYLSALICYLIC ACID SRT [Concomitant]
  7. NITROGLYCERIN [Concomitant]
  8. INSULIN HUMAN [Concomitant]
  9. TRAZODONE HCL [Concomitant]
  10. LOPRESSOR [Concomitant]
  11. LISINOPRIL [Concomitant]
  12. ZOCOR [Concomitant]
  13. ALTACE [Concomitant]

REACTIONS (2)
  - CARDIOVASCULAR DISORDER [None]
  - MYOCARDIAL INFARCTION [None]
